FAERS Safety Report 10094311 (Version 1)
Quarter: 2014Q2

REPORT INFORMATION
  Report Type: Spontaneous
  Country: US (occurrence: None)
  Receive Date: 20140421
  Receipt Date: 20140421
  Transmission Date: 20141212
  Serious: Yes (Disabling)
  Sender: FDA-Public Use
  Company Number: None

PATIENT
  Age: 63 Year
  Sex: Male
  Weight: 74.84 kg

DRUGS (1)
  1. LEVOFLOXACIN [Suspect]
     Indication: ARTHRITIS INFECTIVE

REACTIONS (4)
  - Feeling abnormal [None]
  - Rash erythematous [None]
  - Muscular weakness [None]
  - Muscular weakness [None]
